FAERS Safety Report 5938651-5 (Version None)
Quarter: 2008Q4

REPORT INFORMATION
  Report Type: 
  Country: None (occurrence: None)
  Receive Date: 20081103
  Receipt Date: 20081023
  Transmission Date: 20090506
  Serious: Yes (Hospitalization)
  Sender: FDA-Public Use
  Company Number: FR-ROCHE-592311

PATIENT
  Sex: Female
  Weight: 61 kg

DRUGS (4)
  1. CAPECITABINE [Suspect]
     Dosage: FREQUENCY: ONE OF DAY.
     Route: 048
     Dates: start: 20070110
  2. BEVACIZUMAB [Suspect]
     Dosage: FORM: IV. STRENGTH: 25 MG/ML
     Route: 042
     Dates: start: 20070110, end: 20080828
  3. DOCETAXEL [Suspect]
     Route: 042
     Dates: start: 20070110
  4. NEXIUM [Concomitant]
     Dates: start: 20070101

REACTIONS (3)
  - DIARRHOEA [None]
  - PROTEINURIA [None]
  - RENAL PAIN [None]
